FAERS Safety Report 4719800-3 (Version None)
Quarter: 2005Q3

REPORT INFORMATION
  Report Type: 
  Country: None (occurrence: None)
  Receive Date: 20050721
  Receipt Date: 20041109
  Transmission Date: 20060218
  Serious: No
  Sender: FDA-Public Use
  Company Number: US-GLAXOSMITHKLINE-A0533244A

PATIENT
  Age: 52 Year
  Sex: Female

DRUGS (1)
  1. AVANDIA [Suspect]
     Dosage: 2MG UNKNOWN
     Route: 048
     Dates: start: 20040815, end: 20040815

REACTIONS (5)
  - GASTROINTESTINAL PAIN [None]
  - NAUSEA [None]
  - PAIN [None]
  - PRURITUS [None]
  - RASH [None]
